FAERS Safety Report 7554929-6 (Version None)
Quarter: 2011Q2

REPORT INFORMATION
  Report Type: 
  Country: None (occurrence: None)
  Receive Date: 20110617
  Receipt Date: 20110613
  Transmission Date: 20111010
  Serious: Yes (Hospitalization, Other)
  Sender: FDA-Public Use
  Company Number: US-BRISTOL-MYERS SQUIBB COMPANY-15042419

PATIENT
  Age: 75 Year
  Sex: Male

DRUGS (18)
  1. CAPSAICIN CREAM [Concomitant]
     Indication: PAIN
     Dosage: 1DF:.025%
  2. WARFARIN SODIUM [Suspect]
     Indication: THROMBOSIS PROPHYLAXIS
     Dosage: INTERRUPTED ON 28MAR2010 RESTARTED ON 01APR2010
     Route: 048
     Dates: start: 20090217
  3. INSULIN ASPART [Concomitant]
     Indication: DIABETES MELLITUS
     Dosage: 1DF:100UNIT/ML INJ 40UNITS SC
     Route: 058
  4. MULTIVITAMIN WITH MINERALS [Concomitant]
     Dosage: 1DF:1TABS MINERAL CAPS/TABS
     Route: 048
  5. DULOXETINE HYDROCHLORIDE [Concomitant]
     Dosage: CAPSULE,1CAP BY MOUTH DAILY
     Route: 048
  6. PLACEBO [Suspect]
     Indication: THROMBOSIS PROPHYLAXIS
     Dosage: INTERRUPTED ON 28MAR2010 RESTARTED ON 01APR2010
     Route: 048
     Dates: start: 20090217
  7. MOXIFLOXACIN HCL [Concomitant]
     Indication: INFECTION
     Dosage: 1 TABS BY MOUTH
     Route: 048
  8. GLUCOSE [Concomitant]
     Dosage: PRECISION XTRA TEST STRIP 1STRIP FOR TESTING TO BLOOD DUGAR BFR MEALS + AT BEDTIM FOR GLUCOSE TEST
  9. SIMVASTATIN [Concomitant]
     Dosage: TAKE 1-HALF TABS BY MOUTH DAILY  WITH EVE MEAL
     Route: 048
  10. LISINOPRIL [Concomitant]
     Dates: start: 20030926
  11. FUROSEMIDE [Concomitant]
     Dosage: 1TABS
     Route: 048
  12. INSULIN [Concomitant]
     Dosage: INSULIN SYRINGE 0.5ML 31G 5/16IN
  13. POLYETHYLENE GLYCOL [Concomitant]
     Indication: CONSTIPATION
     Dosage: 1DF:3350(UNIT NOT SPECIFIED) ORAL POWDER,1TABLESPOON=17GM IN WATER OR JUICE
     Route: 048
  14. METOPROLOL TARTRATE [Concomitant]
     Indication: BLOOD PRESSURE
     Dosage: TABS TAKE 1 AND ONE-HALF TABS
     Route: 048
  15. INSULIN GLARGINE [Concomitant]
     Dates: start: 20040618
  16. LISINOPRIL [Concomitant]
     Indication: BLOOD PRESSURE
     Dosage: TABS
     Route: 048
  17. NIACIN [Concomitant]
     Indication: BLOOD TRIGLYCERIDES
     Dosage: 1TABS BY MOUTH NIGHTLY AT BEDTIME
     Route: 048
  18. ACETAMINOPHEN AND HYDROCODONE BITARTRATE [Concomitant]
     Indication: PAIN
     Dosage: HYDROCODONE 5/ACTAMINOPHEN 500MG TABS
     Route: 048

REACTIONS (3)
  - CHEST PAIN [None]
  - PULMONARY OEDEMA [None]
  - IRON DEFICIENCY ANAEMIA [None]
